FAERS Safety Report 12556898 (Version 1)
Quarter: 2016Q3

REPORT INFORMATION
  Report Type: Spontaneous
  Country: CA (occurrence: CA)
  Receive Date: 20160714
  Receipt Date: 20160714
  Transmission Date: 20161109
  Serious: Yes (Other)
  Sender: FDA-Public Use
  Company Number: CA-AMGEN-CANSP2016087557

PATIENT
  Age: 75 Year
  Sex: Female

DRUGS (1)
  1. ENBREL [Suspect]
     Active Substance: ETANERCEPT
     Indication: RHEUMATOID ARTHRITIS
     Dosage: UNK
     Route: 058

REACTIONS (7)
  - Rheumatoid factor positive [Unknown]
  - Rash [Unknown]
  - Rheumatoid arthritis [Unknown]
  - Synovitis [Unknown]
  - C-reactive protein increased [Unknown]
  - Bone erosion [Unknown]
  - Pain [Unknown]

NARRATIVE: CASE EVENT DATE: 20160623
